FAERS Safety Report 9122705 (Version 1)
Quarter: 2013Q1

REPORT INFORMATION
  Report Type: Spontaneous
  Country: US (occurrence: None)
  Receive Date: 20130225
  Receipt Date: 20130225
  Transmission Date: 20140127
  Serious: Yes (Hospitalization)
  Sender: FDA-Public Use
  Company Number: None

PATIENT
  Age: 65 Year
  Sex: Male
  Weight: 123 kg

DRUGS (11)
  1. BYETTA [Suspect]
     Indication: TYPE 2 DIABETES MELLITUS
     Dosage: 10MCG TWICE DAILY SQ
     Route: 058
     Dates: start: 20091223, end: 20130220
  2. AMARYL [Concomitant]
  3. CRESTOR [Concomitant]
  4. LASIX [Concomitant]
  5. PLAVIX [Concomitant]
  6. VITAMIN D [Concomitant]
  7. ZOLOFT [Concomitant]
  8. ASPIRIN [Concomitant]
  9. ATENOLOL [Concomitant]
  10. LISINOPRIL [Concomitant]
  11. TRILIPIX [Concomitant]

REACTIONS (7)
  - Abdominal pain [None]
  - Abdominal pain upper [None]
  - Constipation [None]
  - Nausea [None]
  - Vomiting [None]
  - Hypophagia [None]
  - Pancreatitis [None]
